FAERS Safety Report 22362842 (Version 1)
Quarter: 2023Q2

REPORT INFORMATION
  Report Type: Spontaneous
  Country: US (occurrence: US)
  Receive Date: 20230524
  Receipt Date: 20230524
  Transmission Date: 20230722
  Serious: Yes (Hospitalization)
  Sender: FDA-Public Use
  Company Number: US-STRIDES ARCOLAB LIMITED-2023SP007601

PATIENT
  Age: 85 Year
  Sex: Female

DRUGS (3)
  1. TACROLIMUS [Interacting]
     Active Substance: TACROLIMUS
     Indication: Immunosuppressant drug therapy
     Dosage: UNK
     Route: 065
  2. TACROLIMUS [Interacting]
     Active Substance: TACROLIMUS
     Indication: Renal transplant
  3. NIRMATRELVIR\RITONAVIR [Interacting]
     Active Substance: NIRMATRELVIR\RITONAVIR
     Indication: COVID-19
     Dosage: UNK
     Route: 065

REACTIONS (12)
  - Drug interaction [Unknown]
  - Gait disturbance [Unknown]
  - Hypophagia [Unknown]
  - Atrial fibrillation [Unknown]
  - Acute kidney injury [Recovered/Resolved]
  - Hypertension [Unknown]
  - Encephalopathy [Unknown]
  - Urinary tract infection [Unknown]
  - Toxicity to various agents [Recovered/Resolved]
  - Confusional state [Unknown]
  - Asthenia [Unknown]
  - COVID-19 [Unknown]
